FAERS Safety Report 7542749-8 (Version None)
Quarter: 2011Q2

REPORT INFORMATION
  Report Type: 
  Country: None (occurrence: None)
  Receive Date: 20110613
  Receipt Date: 20110606
  Transmission Date: 20111010
  Serious: Yes (Death, Hospitalization)
  Sender: FDA-Public Use
  Company Number: A0930398A

PATIENT
  Age: 83 Year
  Sex: Female

DRUGS (2)
  1. COREG [Suspect]
     Dosage: 12.5MG TWICE PER DAY
     Route: 048
     Dates: start: 20081201, end: 20101206
  2. COUMADIN [Concomitant]

REACTIONS (2)
  - HAEMORRHAGE [None]
  - SEPTIC SHOCK [None]
